FAERS Safety Report 6662473-3 (Version None)
Quarter: 2010Q1

REPORT INFORMATION
  Report Type: 
  Country: None (occurrence: None)
  Receive Date: 20100331
  Receipt Date: 20100325
  Transmission Date: 20100710
  Serious: Yes (Hospitalization)
  Sender: FDA-Public Use
  Company Number: JP-MERCK-1003USA04383

PATIENT
  Age: 77 Year
  Sex: Male

DRUGS (6)
  1. JANUVIA [Suspect]
     Indication: TYPE 2 DIABETES MELLITUS
     Route: 048
     Dates: start: 20100112, end: 20100223
  2. AMARYL [Concomitant]
     Route: 065
  3. URINORM [Concomitant]
     Route: 065
  4. FLUITRAN [Concomitant]
     Route: 065
  5. GLYCORAN [Concomitant]
     Route: 065
  6. MOHRUS [Concomitant]
     Route: 065

REACTIONS (1)
  - PNEUMONIA [None]
